FAERS Safety Report 8916409 (Version 1)
Quarter: 2012Q4

REPORT INFORMATION
  Report Type: 
  Country: US (occurrence: US)
  Receive Date: 20121120
  Receipt Date: 20121120
  Transmission Date: 20130627
  Serious: Yes (Hospitalization, Other)
  Sender: FDA-Public Use
  Company Number: US-ELI_LILLY_AND_COMPANY-US201209007313

PATIENT
  Age: 73 Year
  Sex: Female

DRUGS (14)
  1. FORTEO [Suspect]
     Indication: OSTEOPOROSIS
     Dosage: 20 ug, qd
     Dates: start: 20120921
  2. FORTEO [Suspect]
     Dosage: 20 ug, qd
     Dates: end: 20121025
  3. CALTRATE WITH VITAMIN D [Concomitant]
     Dosage: 600mg with 1400 units qd
  4. PRENATAL                           /02195401/ [Concomitant]
     Dosage: UNK, qd
  5. POTASSIUM [Concomitant]
     Dosage: 10 mg, qd
  6. COZAAR [Concomitant]
     Dosage: 100 mg, qd
  7. SYNTHROID [Concomitant]
     Dosage: 100 ug, qd
  8. VITAMIN D3 [Concomitant]
     Dosage: 1000 u, qd
  9. DESYREL [Concomitant]
     Indication: DEPRESSION
     Dosage: 150 mg, qd
  10. LEXAPRO [Concomitant]
     Dosage: 20 mg, qd
  11. TRANZINE [Concomitant]
     Indication: ANXIETY
     Dosage: 15 mg, qd
  12. PROAIR [Concomitant]
     Indication: ASTHMA
     Dosage: UNK, qd
  13. PROTONIX [Concomitant]
     Indication: GASTROOESOPHAGEAL REFLUX DISEASE
     Dosage: 40 mg, qd
  14. COUMADIN [Concomitant]
     Dosage: 5 mg, qd

REACTIONS (6)
  - Shoulder arthroplasty [Recovering/Resolving]
  - Peripheral embolism [Unknown]
  - Pulmonary embolism [Unknown]
  - Muscle spasms [Recovered/Resolved]
  - Fatigue [Not Recovered/Not Resolved]
  - Musculoskeletal pain [Not Recovered/Not Resolved]
